FAERS Safety Report 8118013-5 (Version None)
Quarter: 2012Q1

REPORT INFORMATION
  Report Type: 
  Country: None (occurrence: None)
  Receive Date: 20120207
  Receipt Date: 20120125
  Transmission Date: 20120608
  Serious: Yes (Hospitalization)
  Sender: FDA-Public Use
  Company Number: DE-UCBSA-033663

PATIENT
  Age: 71 Year
  Sex: Female

DRUGS (24)
  1. AMANTADINE HCL [Concomitant]
     Indication: PARKINSON'S DISEASE
     Dates: end: 20091001
  2. SIMVASTATIN [Concomitant]
     Indication: BLOOD CHOLESTEROL DECREASED
  3. ENALAPRIL PLUS [Concomitant]
     Dosage: 10/25MG
     Dates: start: 20110512
  4. TORSEMIDE [Concomitant]
     Indication: HYPERTENSION
     Dates: start: 20110512, end: 20110917
  5. NEUPRO [Suspect]
     Route: 062
     Dates: start: 20101022, end: 20101027
  6. NEUPRO [Suspect]
     Route: 062
     Dates: start: 20091001, end: 20091001
  7. AMANTADINE HCL [Concomitant]
     Dosage: DOSE DECREASED
  8. MADOPAR [Concomitant]
     Indication: PARKINSON'S DISEASE
     Dates: start: 20110512, end: 20111208
  9. SIMVASTATIN [Concomitant]
     Dates: start: 20110512
  10. ENALAPRIL PLUS [Concomitant]
     Indication: HYPERTENSION
     Dosage: DAILY DOSE:10/25 MG
     Dates: start: 20100415, end: 20110401
  11. SEROQUEL [Concomitant]
     Indication: HALLUCINATION
     Dates: start: 20110512, end: 20110917
  12. NEUPRO [Suspect]
     Route: 062
     Dates: start: 20101001, end: 20101001
  13. MADOPAR LT [Concomitant]
     Indication: PARKINSON'S DISEASE
     Dates: start: 20110512
  14. METOPROLOL SUCCINATE [Concomitant]
     Indication: HYPERTENSION
     Dates: end: 20110917
  15. NEUPRO [Suspect]
     Route: 062
     Dates: start: 20091001, end: 20100401
  16. NEUPRO [Suspect]
     Route: 062
     Dates: start: 20090701, end: 20091001
  17. AMANTADINE HCL [Concomitant]
     Dates: start: 20101021
  18. SIMVASTATIN [Concomitant]
     Indication: BLOOD CHOLESTEROL INCREASED
  19. MADOPAR [Concomitant]
     Dates: start: 20111208
  20. NEUPRO [Suspect]
     Indication: PARKINSON'S DISEASE
     Route: 062
     Dates: start: 20101028, end: 20110512
  21. AZILECT [Concomitant]
     Indication: PARKINSON'S DISEASE
     Dates: start: 20110512
  22. ENALAPRIL MALEATE [Concomitant]
     Indication: HYPERTENSION
  23. SIMVASTATIN [Concomitant]
     Dates: start: 20110512
  24. LEVOTHYROXINE SODIUM [Concomitant]
     Indication: SURGERY
     Dosage: 75 OTHER UG
     Dates: start: 20100801

REACTIONS (1)
  - GAIT DISTURBANCE [None]
